FAERS Safety Report 8730209 (Version 2)
Quarter: 2012Q4

REPORT INFORMATION
  Report Type: 
  Country: US (occurrence: US)
  Receive Date: 20120817
  Receipt Date: 20120912
  Transmission Date: 20130627
  Serious: Yes (Death)
  Sender: FDA-Public Use
  Company Number: PHHO2012US011939

PATIENT
  Age: 55 Year
  Sex: Female
  Weight: 101.4 kg

DRUGS (5)
  1. GILENYA [Suspect]
     Indication: RELAPSING-REMITTING MULTIPLE SCLEROSIS
     Dosage: 0.5 mg, QD
     Route: 048
     Dates: start: 20110614, end: 20111201
  2. GABAPENTIN [Concomitant]
     Indication: OSTEOARTHRITIS
     Dosage: 600 mg, QD
     Route: 048
     Dates: start: 199909
  3. GABAPENTIN [Concomitant]
     Dosage: 1200 mg, QD
     Route: 048
  4. GABAPENTIN [Concomitant]
     Dosage: 5000 mg, UNK
  5. TRAMADOL [Concomitant]
     Indication: OSTEOARTHRITIS
     Dosage: 50 mg QD, PRN Pain
     Dates: start: 2010

REACTIONS (1)
  - Death [Fatal]
